FAERS Safety Report 14972921 (Version 1)
Quarter: 2018Q2

REPORT INFORMATION
  Report Type: Spontaneous
  Country: US (occurrence: US)
  Receive Date: 20180605
  Receipt Date: 20180605
  Transmission Date: 20180711
  Serious: No
  Sender: FDA-Public Use
  Company Number: US-AUROBINDO-AUR-APU-2018-019801

PATIENT
  Age: 65 Year
  Sex: Female

DRUGS (1)
  1. VENLAFAXINE EXTENDED RELEASE CAPSULE [Suspect]
     Active Substance: VENLAFAXINE HYDROCHLORIDE
     Indication: PRODUCT USED FOR UNKNOWN INDICATION
     Dosage: 37.5 MILLIGRAM, TWO TIMES A DAY
     Route: 048
     Dates: start: 2000

REACTIONS (5)
  - Drug withdrawal syndrome [Unknown]
  - Vision blurred [Unknown]
  - Dizziness [Unknown]
  - Feeling abnormal [Unknown]
  - Balance disorder [Unknown]
